FAERS Safety Report 18686980 (Version 1)
Quarter: 2020Q4

REPORT INFORMATION
  Report Type: Spontaneous
  Country: FR (occurrence: FR)
  Receive Date: 20201231
  Receipt Date: 20201231
  Transmission Date: 20210114
  Serious: Yes (Other)
  Sender: FDA-Public Use
  Company Number: FR-AUROBINDO-AUR-APL-2020-063779

PATIENT
  Age: 85 Year
  Sex: Male

DRUGS (1)
  1. CLOZAPINE. [Suspect]
     Active Substance: CLOZAPINE
     Indication: PRODUCT USED FOR UNKNOWN INDICATION
     Dosage: 25 MILLIGRAM, FOUR TIMES/DAY
     Route: 065

REACTIONS (5)
  - Left ventricular dilatation [Unknown]
  - Low cardiac output syndrome [Unknown]
  - Ejection fraction decreased [Unknown]
  - Hepatocellular injury [Unknown]
  - Congestive cardiomyopathy [Unknown]
